FAERS Safety Report 6958600-0 (Version None)
Quarter: 2010Q3

REPORT INFORMATION
  Report Type: 
  Country: None (occurrence: None)
  Receive Date: 20100831
  Receipt Date: 20100823
  Transmission Date: 20110219
  Serious: Yes (Hospitalization)
  Sender: FDA-Public Use
  Company Number: US-US-EMD SERONO, INC.-7005233

PATIENT
  Sex: Female
  Weight: 77 kg

DRUGS (5)
  1. REBIF [Suspect]
     Indication: MULTIPLE SCLEROSIS
     Route: 058
     Dates: start: 20090625, end: 20100601
  2. REBIF [Suspect]
     Route: 058
     Dates: start: 20100601
  3. BENICAR [Concomitant]
     Indication: HYPERTENSION
  4. TOPROL-XL [Concomitant]
     Indication: HYPERTENSION
  5. VITAMIN D [Concomitant]
     Route: 048
     Dates: start: 20090625

REACTIONS (15)
  - BLISTER [None]
  - CALCINOSIS [None]
  - CHILLS [None]
  - HEADACHE [None]
  - HYPERTENSION [None]
  - INFLUENZA LIKE ILLNESS [None]
  - INJECTION SITE REACTION [None]
  - KIDNEY INFECTION [None]
  - MULTIPLE SCLEROSIS RELAPSE [None]
  - NEPHROLITHIASIS [None]
  - PAIN [None]
  - SEPSIS [None]
  - SINUSITIS [None]
  - URINARY INCONTINENCE [None]
  - URINARY TRACT INFECTION [None]
